FAERS Safety Report 6398448-1 (Version None)
Quarter: 2009Q4

REPORT INFORMATION
  Report Type: 
  Country: None (occurrence: None)
  Receive Date: 20091013
  Receipt Date: 20091006
  Transmission Date: 20100525
  Serious: Yes (Death, Hospitalization)
  Sender: FDA-Public Use
  Company Number: A0729984A

PATIENT
  Age: 74 Year
  Sex: Female

DRUGS (13)
  1. AVANDIA [Suspect]
     Dosage: 8MG PER DAY
     Route: 048
     Dates: start: 20070101, end: 20070531
  2. ALLOPURINOL [Concomitant]
  3. ASPIRIN [Concomitant]
  4. LASIX [Concomitant]
  5. LANTUS [Concomitant]
  6. METAMUCIL [Concomitant]
  7. PHOSLO [Concomitant]
  8. PROCRIT [Concomitant]
  9. SULAR [Concomitant]
  10. TOPROL-XL [Concomitant]
  11. ZOCOR [Concomitant]
  12. ZYRTEC [Concomitant]
  13. COUMADIN [Concomitant]

REACTIONS (2)
  - CARDIAC FAILURE CONGESTIVE [None]
  - RENAL FAILURE [None]
